FAERS Safety Report 8101228-X (Version None)
Quarter: 2012Q1

REPORT INFORMATION
  Report Type: 
  Country: None (occurrence: None)
  Receive Date: 20120129
  Receipt Date: 20111028
  Transmission Date: 20120608
  Serious: No
  Sender: FDA-Public Use
  Company Number: US-ABBOTT-11P-163-0864164-00

PATIENT
  Age: 45 Year
  Sex: Female

DRUGS (8)
  1. VIVELLE-DOT [Concomitant]
     Indication: PRODUCT USED FOR UNKNOWN INDICATION
     Dosage: APPLIED ON MONDAY AND FRIDAY
  2. PODOFILOX [Concomitant]
     Indication: SKIN PAPILLOMA
     Dosage: PRN
     Route: 061
  3. PREDNISONE TAB [Concomitant]
     Indication: PRODUCT USED FOR UNKNOWN INDICATION
     Dosage: 1 1/2 MONTHS
  4. PREDNISONE TAB [Concomitant]
     Dosage: INCREASED BY 5 MG
  5. ESTRADIOL [Concomitant]
     Indication: PRODUCT USED FOR UNKNOWN INDICATION
     Dosage: QD-PAST 5 DAYS
  6. HUMIRA [Suspect]
     Indication: RHEUMATOID ARTHRITIS
     Dates: start: 20111012
  7. NEURONTIN [Concomitant]
     Indication: PRODUCT USED FOR UNKNOWN INDICATION
     Dosage: QD
  8. ZYRTEC [Concomitant]
     Indication: HYPERSENSITIVITY

REACTIONS (11)
  - PRURITUS [None]
  - FALL [None]
  - ARTHRALGIA [None]
  - ASTHENIA [None]
  - INSOMNIA [None]
  - RHEUMATOID ARTHRITIS [None]
  - CRYING [None]
  - FEELING HOT [None]
  - INJECTION SITE HAEMATOMA [None]
  - SENSATION OF HEAVINESS [None]
  - FEELING ABNORMAL [None]
